FAERS Safety Report 7608399-X (Version None)
Quarter: 2011Q3

REPORT INFORMATION
  Report Type: 
  Country: None (occurrence: None)
  Receive Date: 20110713
  Receipt Date: 20110713
  Transmission Date: 20111222
  Serious: Yes (Hospitalization, Disabling, Other)
  Sender: FDA-Public Use
  Company Number: None

PATIENT
  Sex: Male
  Weight: 77.1115 kg

DRUGS (2)
  1. TRICOR [Suspect]
     Indication: BLOOD CHOLESTEROL
     Dosage: 1 DAY AT BEDTIME 1 145 MG.
     Dates: start: 20010101, end: 20110101
  2. TRICOR [Suspect]
     Indication: BLOOD TRIGLYCERIDES
     Dosage: 1 DAY AT BEDTIME 1 145 MG.
     Dates: start: 20010101, end: 20110101

REACTIONS (3)
  - FALL [None]
  - INJURY [None]
  - MUSCLE DISORDER [None]
